FAERS Safety Report 5745319-7 (Version None)
Quarter: 2008Q2

REPORT INFORMATION
  Report Type: 
  Country: None (occurrence: None)
  Receive Date: 20080521
  Receipt Date: 20080512
  Transmission Date: 20081010
  Serious: Yes (Hospitalization)
  Sender: FDA-Public Use
  Company Number: JP-JNJFOC-20071202466

PATIENT
  Sex: Female

DRUGS (12)
  1. REMICADE [Suspect]
     Dosage: 4TH DOSE
     Route: 042
  2. REMICADE [Suspect]
     Route: 042
  3. REMICADE [Suspect]
     Route: 042
  4. REMICADE [Suspect]
     Indication: CROHN'S DISEASE
     Route: 042
  5. LASIX [Suspect]
     Indication: ASCITES
  6. ALDACTONE [Concomitant]
     Indication: ASCITES
     Route: 048
  7. ASPARA [Concomitant]
  8. PENTASA [Concomitant]
     Route: 048
  9. LAC-B [Concomitant]
     Route: 048
  10. PARIET [Concomitant]
     Route: 048
  11. FLAGYL [Concomitant]
     Route: 048
  12. ELENTAL [Concomitant]
     Route: 048

REACTIONS (1)
  - HYPOKALAEMIA [None]
